FAERS Safety Report 16011015 (Version 2)
Quarter: 2019Q1

REPORT INFORMATION
  Report Type: Spontaneous
  Country: FR (occurrence: FR)
  Receive Date: 20190227
  Receipt Date: 20190312
  Transmission Date: 20190418
  Serious: Yes (Death, Other)
  Sender: FDA-Public Use
  Company Number: FR-ACCORD-109192

PATIENT
  Age: 39 Year
  Sex: Female

DRUGS (8)
  1. EPIRUBICIN [Suspect]
     Active Substance: EPIRUBICIN
     Indication: BREAST CANCER
     Dosage: 100 MG/M2, CYCLIC (6 CYCLES)
     Route: 065
  2. CYCLOPHOSPHAMIDE/CYCLOPHOSPHAMIDE MONOHYDRATE [Suspect]
     Active Substance: CYCLOPHOSPHAMIDE
     Indication: BREAST CANCER
     Dosage: 60 MG/KG, (D-5 AND D-4)
     Route: 065
  3. FLUDARABINE [Concomitant]
     Active Substance: FLUDARABINE PHOSPHATE
     Indication: PRODUCT USED FOR UNKNOWN INDICATION
     Dosage: 25 MG/M2, (D-6, D-5 AND D-4)
     Route: 065
  4. IDARUBICIN [Suspect]
     Active Substance: IDARUBICIN
     Indication: PRODUCT USED FOR UNKNOWN INDICATION
     Dosage: 8 MG/M2, CYCLIC (5 PLUS 7),CYCLIC (2 PLUS 4)
     Route: 065
     Dates: start: 200801
  5. MYCOPHENOLIC ACID. [Suspect]
     Active Substance: MYCOPHENOLIC ACID
     Indication: PROPHYLAXIS AGAINST GRAFT VERSUS HOST DISEASE
     Dosage: UNK
     Route: 065
  6. FLUOROURACIL. [Suspect]
     Active Substance: FLUOROURACIL
     Indication: BREAST CANCER
     Dosage: 500 MG/M2, CYCLIC (6 CYCLES)
     Route: 065
  7. ARACYTINE [Concomitant]
     Active Substance: CYTARABINE
     Indication: ACUTE MYELOID LEUKAEMIA
     Dosage: 200 MG/M2, CYCLIC (5+7),
     Route: 065
     Dates: start: 200801
  8. CICLOSPORIN [Suspect]
     Active Substance: CYCLOSPORINE
     Indication: PROPHYLAXIS AGAINST GRAFT VERSUS HOST DISEASE
     Dosage: UNK UKN, UNK
     Route: 042

REACTIONS (18)
  - Multiple organ dysfunction syndrome [Fatal]
  - Right ventricular enlargement [Unknown]
  - Depressed level of consciousness [Unknown]
  - Ejection fraction decreased [Unknown]
  - Tricuspid valve incompetence [Unknown]
  - Second primary malignancy [Unknown]
  - Pneumonia [Unknown]
  - Tachycardia [Unknown]
  - Pericardial effusion [Unknown]
  - Liver disorder [Unknown]
  - Acute myeloid leukaemia [Unknown]
  - Generalised oedema [Unknown]
  - Cardiotoxicity [Unknown]
  - Human herpesvirus 6 infection [Unknown]
  - Chest pain [Unknown]
  - Pyrexia [Unknown]
  - Graft versus host disease in gastrointestinal tract [Unknown]
  - Malignant pleural effusion [Unknown]
